FAERS Safety Report 24257354 (Version 1)
Quarter: 2024Q3

REPORT INFORMATION
  Report Type: Report from Study
  Country: US (occurrence: US)
  Receive Date: 20240828
  Receipt Date: 20240828
  Transmission Date: 20241016
  Serious: Yes (Hospitalization, Other)
  Sender: UCB
  Company Number: US-UCBSA-2024043583

PATIENT
  Age: 54 Year
  Sex: Female

DRUGS (2)
  1. BIMEKIZUMAB [Suspect]
     Active Substance: BIMEKIZUMAB
     Indication: Psoriasis
     Dosage: 320 MILLIGRAM, EV 4 WEEKS
     Route: 058
     Dates: start: 20240521, end: 20240618
  2. MOUNJARO [Concomitant]
     Active Substance: TIRZEPATIDE
     Indication: Product used for unknown indication
     Dosage: UNK

REACTIONS (4)
  - Cerebrovascular accident [Recovering/Resolving]
  - Carotid artery occlusion [Recovering/Resolving]
  - Bell^s palsy [Recovering/Resolving]
  - Stent placement [Recovering/Resolving]

NARRATIVE: CASE EVENT DATE: 20240703
